FAERS Safety Report 15160482 (Version 3)
Quarter: 2018Q4

REPORT INFORMATION
  Report Type: Spontaneous
  Country: US (occurrence: US)
  Receive Date: 20180718
  Receipt Date: 20181224
  Transmission Date: 20190204
  Serious: Yes (Hospitalization, Other)
  Sender: FDA-Public Use
  Company Number: US-PFIZER INC-2018285620

PATIENT
  Age: 42 Year
  Sex: Male

DRUGS (6)
  1. DICYCLOMINE [Concomitant]
     Active Substance: DICYCLOMINE HYDROCHLORIDE
     Indication: IRRITABLE BOWEL SYNDROME
     Dosage: 10 MG, 4X/DAY
  2. LYRICA [Suspect]
     Active Substance: PREGABALIN
     Dosage: 50 MG, 2X/DAY (ONCE IN THE MORNING WHEN I GET UP AND ONCE IN THE EVENING WHEN I GO TO BED)
     Route: 048
     Dates: start: 201803
  3. LYRICA [Suspect]
     Active Substance: PREGABALIN
     Indication: FIBROMYALGIA
     Dosage: 200 MG, DAILY (1 PER AM, 1 PER AT NOON AND 2PER H.S)
     Route: 048
     Dates: start: 20180109
  4. OMEPRAZOLE. [Concomitant]
     Active Substance: OMEPRAZOLE
     Dosage: 20 MG, 1X/DAY
  5. ASA [Concomitant]
     Active Substance: ASPIRIN
     Dosage: 8 MG, 1X/DAY
  6. DICYCLOMINE [Concomitant]
     Active Substance: DICYCLOMINE HYDROCHLORIDE
     Dosage: UNK UNK, 3X/DAY

REACTIONS (20)
  - Neuropathy peripheral [Unknown]
  - Gastric disorder [Unknown]
  - Memory impairment [Unknown]
  - Loss of personal independence in daily activities [Unknown]
  - Hypokinesia [Unknown]
  - Feeling cold [Unknown]
  - Abdominal distension [Unknown]
  - Asthenia [Unknown]
  - Skin burning sensation [Unknown]
  - Thinking abnormal [Unknown]
  - Dizziness [Unknown]
  - Cognitive disorder [Unknown]
  - Overweight [Unknown]
  - Hot flush [Unknown]
  - Visual impairment [Unknown]
  - Photosensitivity reaction [Unknown]
  - Vertigo [Unknown]
  - Feeling abnormal [Unknown]
  - Blood pressure fluctuation [Recovering/Resolving]
  - Hyperhidrosis [Unknown]

NARRATIVE: CASE EVENT DATE: 2018
